FAERS Safety Report 7524524-3 (Version None)
Quarter: 2011Q2

REPORT INFORMATION
  Report Type: 
  Country: None (occurrence: None)
  Receive Date: 20110606
  Receipt Date: 20110204
  Transmission Date: 20111010
  Serious: Yes (Hospitalization, Other)
  Sender: FDA-Public Use
  Company Number: US-BAYER-201029508NA

PATIENT
  Age: 35 Year
  Sex: Female
  Weight: 181.41 kg

DRUGS (10)
  1. LISINOPRIL [Concomitant]
     Indication: HYPERTENSION
     Dosage: UNK
     Dates: start: 20080101
  2. HYDROCHLOROTHIAZIDE [Concomitant]
  3. YASMIN [Suspect]
     Indication: CONTRACEPTION
     Route: 048
     Dates: start: 20060201, end: 20080601
  4. NEXIUM [Concomitant]
  5. DIOVAN [Concomitant]
  6. PHENTERMINE [Concomitant]
  7. ZYMINE [Concomitant]
  8. TRAMADOL HCL [Concomitant]
  9. CELEBREX [Concomitant]
  10. METFORMIN HCL [Concomitant]

REACTIONS (2)
  - THROMBOSIS [None]
  - DEEP VEIN THROMBOSIS [None]
